FAERS Safety Report 16790753 (Version 1)
Quarter: 2019Q3

REPORT INFORMATION
  Report Type: Spontaneous
  Country: US (occurrence: US)
  Receive Date: 20190910
  Receipt Date: 20190910
  Transmission Date: 20191005
  Serious: No
  Sender: FDA-Public Use
  Company Number: US-PFIZER INC-2019389412

PATIENT
  Age: 62 Year
  Sex: Female
  Weight: 60.78 kg

DRUGS (2)
  1. LYRICA [Suspect]
     Active Substance: PREGABALIN
     Indication: PARAESTHESIA
     Dosage: 200 MG, 2X/DAY(200 MG BY MOUTH TWICE A DAY, ONE IN THE MORNING AND ONE IN THE EVENING )
     Route: 048
     Dates: start: 20190501
  2. LYRICA [Suspect]
     Active Substance: PREGABALIN
     Indication: PAIN IN EXTREMITY

REACTIONS (1)
  - Pain in extremity [Recovered/Resolved]
